FAERS Safety Report 4749577-7 (Version None)
Quarter: 2005Q3

REPORT INFORMATION
  Report Type: 
  Country: None (occurrence: None)
  Receive Date: 20050822
  Receipt Date: 20050518
  Transmission Date: 20060218
  Serious: Yes (Other)
  Sender: FDA-Public Use
  Company Number: FR-GLAXOSMITHKLINE-B0381847A

PATIENT
  Age: 70 Year
  Sex: Female

DRUGS (2)
  1. DEROXAT [Suspect]
     Dosage: 20MG PER DAY
     Route: 048
     Dates: start: 20050101, end: 20050501
  2. ALDACTONE [Concomitant]
     Indication: CARDIOVASCULAR DISORDER
     Route: 048

REACTIONS (4)
  - DYSARTHRIA [None]
  - DYSKINESIA [None]
  - ISCHAEMIC STROKE [None]
  - SPEECH DISORDER [None]
